FAERS Safety Report 17877512 (Version 2)
Quarter: 2020Q2

REPORT INFORMATION
  Report Type: Report from Study
  Country: BR (occurrence: BR)
  Receive Date: 20200609
  Receipt Date: 20200619
  Transmission Date: 20200714
  Serious: Yes (Hospitalization, Other)
  Sender: FDA-Public Use
  Company Number: NVSC2020BR130530

PATIENT
  Sex: Female
  Weight: 75 kg

DRUGS (2)
  1. ATENOLOL. [Concomitant]
     Active Substance: ATENOLOL
     Indication: HYPERTENSION
     Dosage: 1 DF, QD (MORE THAN 15 YEARS)
     Route: 048
  2. DIOVAN AMLO FIX [Suspect]
     Active Substance: AMLODIPINE\VALSARTAN
     Indication: HYPERTENSION
     Dosage: 1 DF, QD (MORE THAN 15 YEARS)
     Route: 048

REACTIONS (10)
  - Breast cancer [Recovered/Resolved]
  - Product packaging quantity issue [Unknown]
  - Blood pressure increased [Recovered/Resolved]
  - Blood pressure abnormal [Unknown]
  - Blister [Unknown]
  - Syncope [Recovered/Resolved]
  - Product dose omission [Unknown]
  - Dizziness [Recovered/Resolved]
  - Spinal disorder [Unknown]
  - Malaise [Recovered/Resolved]
